FAERS Safety Report 5524555-9 (Version None)
Quarter: 2007Q4

REPORT INFORMATION
  Report Type: 
  Country: None (occurrence: None)
  Receive Date: 20071123
  Receipt Date: 20071107
  Transmission Date: 20080405
  Serious: Yes (Life-Threatening, Hospitalization)
  Sender: FDA-Public Use
  Company Number: GB-RANBAXY-2007RR-11337

PATIENT

DRUGS (18)
  1. CLARITHROMYCIN 250MG TABLETS [Suspect]
     Indication: INFECTION
     Dosage: 500 MG, BID
     Route: 048
     Dates: start: 20070913, end: 20070914
  2. LAMOTRIGINE 50 MG TABLETS [Suspect]
     Dosage: 50 MG, BID
     Route: 048
     Dates: start: 20050601
  3. ADRENALINE [Concomitant]
     Dosage: UNK
     Route: 042
     Dates: start: 20070904, end: 20070908
  4. DISPERSIBLE ASPIRIN 75MG TABLETS BP [Concomitant]
     Indication: ANTIPLATELET THERAPY
     Dosage: 75 MG, QD
     Route: 048
     Dates: end: 20070906
  5. BECLAZONE [Concomitant]
     Indication: CHRONIC OBSTRUCTIVE PULMONARY DISEASE
     Dosage: 400 UG, BID
     Route: 055
  6. CLEXANE [Concomitant]
     Indication: THROMBOSIS PROPHYLAXIS
     Dosage: 20 MG, UNK
     Route: 058
     Dates: start: 20070910, end: 20070911
  7. CO-AMILOFRUSE [Concomitant]
     Indication: FLUID OVERLOAD
     Dosage: UNK
     Route: 048
     Dates: start: 20070911, end: 20070918
  8. DOPAMINE HCL [Concomitant]
     Indication: HAEMODYNAMIC INSTABILITY
     Dosage: UNK
     Route: 042
     Dates: start: 20070904, end: 20070908
  9. FRUSEMIDE [Concomitant]
     Indication: FLUID OVERLOAD
     Dosage: UNK
     Route: 042
     Dates: start: 20070904, end: 20070908
  10. FRUSEMIDE [Concomitant]
     Dosage: 80 MG, QD
     Route: 048
     Dates: end: 20070902
  11. INSULIN [Concomitant]
     Indication: DIABETES MELLITUS INADEQUATE CONTROL
     Dosage: UNK
     Route: 042
     Dates: start: 20070904, end: 20070908
  12. NICORANDIL [Concomitant]
     Indication: VASODILATATION
     Dosage: 20 MG, UNK
     Route: 048
     Dates: start: 20070912, end: 20070913
  13. NICORANDIL [Concomitant]
     Dosage: 30 MG, UNK
     Route: 048
     Dates: start: 20070913
  14. NORADRENALINE [Concomitant]
     Dosage: UNK
     Route: 042
     Dates: start: 20070904, end: 20070908
  15. ACETAMINOPHEN [Concomitant]
     Indication: PAIN MANAGEMENT
     Dosage: 1000 MG, UNK
     Route: 048
     Dates: start: 20070911
  16. SIMVASTATIN [Concomitant]
     Indication: LIPIDS ABNORMAL
     Dosage: 40 MG, QD
     Route: 048
  17. THEOPHYLLINE [Concomitant]
     Indication: CHRONIC OBSTRUCTIVE PULMONARY DISEASE
     Dosage: 175 MG, BID
     Route: 048
  18. WARFARIN SODIUM [Concomitant]
     Indication: HEART VALVE REPLACEMENT
     Dosage: UNK
     Route: 048
     Dates: start: 20070904

REACTIONS (5)
  - CONVULSION [None]
  - DRUG INTERACTION [None]
  - FOAMING AT MOUTH [None]
  - OBSTRUCTIVE AIRWAYS DISORDER [None]
  - TREMOR [None]
